FAERS Safety Report 5245795-2 (Version None)
Quarter: 2007Q1

REPORT INFORMATION
  Report Type: 
  Country: None (occurrence: None)
  Receive Date: 20070223
  Receipt Date: 20070215
  Transmission Date: 20070707
  Serious: Yes (Other)
  Sender: FDA-Public Use
  Company Number: GB-PFIZER INC-2007013236

PATIENT
  Age: 76 Year
  Sex: Male

DRUGS (6)
  1. DOXAZOSIN MESYLATE [Suspect]
     Indication: HYPERTENSION
     Route: 048
     Dates: start: 20070122, end: 20070127
  2. ASPIRIN [Concomitant]
  3. ATORVASTATIN [Concomitant]
  4. BENDROFLUAZIDE [Concomitant]
  5. DIOVAN [Concomitant]
  6. LEVOTHYROXINE SODIUM [Concomitant]

REACTIONS (3)
  - DIARRHOEA [None]
  - SCOTOMA [None]
  - VISION BLURRED [None]
